FAERS Safety Report 5493593-7 (Version None)
Quarter: 2007Q4

REPORT INFORMATION
  Report Type: 
  Country: None (occurrence: None)
  Receive Date: 20071023
  Receipt Date: 20071015
  Transmission Date: 20080405
  Serious: Yes (Other)
  Sender: FDA-Public Use
  Company Number: US-JNJFOC-20070805426

PATIENT
  Age: 85 Year
  Sex: Female
  Weight: 79.38 kg

DRUGS (5)
  1. PEPCID AC [Suspect]
  2. PEPCID AC [Suspect]
     Indication: DYSPEPSIA
  3. AVALIDE [Concomitant]
     Indication: HYPERTENSION
  4. CLONIDINE [Concomitant]
     Indication: HYPERTENSION
  5. TERAZOSIN HCL [Concomitant]
     Indication: HYPERTENSION

REACTIONS (1)
  - HYPERTENSION [None]
